FAERS Safety Report 16956670 (Version 2)
Quarter: 2019Q4

REPORT INFORMATION
  Report Type: Spontaneous
  Country: US (occurrence: US)
  Receive Date: 20191024
  Receipt Date: 20191028
  Transmission Date: 20200122
  Serious: Yes (Other)
  Sender: FDA-Public Use
  Company Number: US-PFIZER INC-2019425913

PATIENT
  Age: 8 Year
  Sex: Male
  Weight: 147.39 kg

DRUGS (4)
  1. TRILEPTAL [Concomitant]
     Active Substance: OXCARBAZEPINE
     Dosage: 5.5 ML, UNK
  2. GEODON [Suspect]
     Active Substance: ZIPRASIDONE HYDROCHLORIDE\ZIPRASIDONE MESYLATE
     Dosage: UNK, [20 MG CAPSULE OF GEODON IN HALF FOR A 10MG DOSE]
  3. GEODON [Suspect]
     Active Substance: ZIPRASIDONE HYDROCHLORIDE\ZIPRASIDONE MESYLATE
     Dosage: 40 MG, UNK
  4. GEODON [Suspect]
     Active Substance: ZIPRASIDONE HYDROCHLORIDE\ZIPRASIDONE MESYLATE
     Dosage: 20 MG, 4X/DAY

REACTIONS (8)
  - Drug ineffective [Unknown]
  - Agitation [Unknown]
  - Off label use [Unknown]
  - Intentional product misuse [Unknown]
  - Product use issue [Unknown]
  - Product complaint [Unknown]
  - Aggression [Unknown]
  - Loss of consciousness [Unknown]
